FAERS Safety Report 5025468-1 (Version None)
Quarter: 2006Q2

REPORT INFORMATION
  Report Type: 
  Country: None (occurrence: None)
  Receive Date: 20060608
  Receipt Date: 20060530
  Transmission Date: 20061013
  Serious: Yes (Death, Hospitalization)
  Sender: FDA-Public Use
  Company Number: 163-20785-06050183

PATIENT
  Age: 50 Year
  Sex: Female

DRUGS (3)
  1. THALOMID [Suspect]
     Indication: MULTIPLE MYELOMA
     Dosage: 100 MG, DAILY, ORAL
     Route: 048
     Dates: start: 20060329, end: 20060331
  2. DEXAMETHASONE [Concomitant]
  3. PENCILLIN VK (PHENOXYMETHYLPENICILLIN POTASSIUM) [Concomitant]

REACTIONS (1)
  - CARDIAC TAMPONADE [None]
